FAERS Safety Report 23304319 (Version 2)
Quarter: 2023Q4

REPORT INFORMATION
  Report Type: Spontaneous
  Country: JP (occurrence: JP)
  Receive Date: 20231218
  Receipt Date: 20231225
  Transmission Date: 20240110
  Serious: Yes (Life-Threatening, Hospitalization, Other)
  Sender: FDA-Public Use
  Company Number: JP-Accord-395339

PATIENT
  Age: 45 Year
  Sex: Female

DRUGS (2)
  1. CISPLATIN [Suspect]
     Active Substance: CISPLATIN
     Indication: Squamous cell carcinoma
     Dosage: TOTAL OF 5 DOSES OF CDDP
     Route: 013
  2. METHOTREXATE [Suspect]
     Active Substance: METHOTREXATE
     Indication: Rheumatoid arthritis

REACTIONS (12)
  - Muscle necrosis [Unknown]
  - Leukopenia [Unknown]
  - Nausea [Unknown]
  - Decreased appetite [Unknown]
  - Mucosal inflammation [Unknown]
  - Dermatitis [Unknown]
  - Conjunctivitis [Unknown]
  - Corneal perforation [Unknown]
  - Trismus [Not Recovered/Not Resolved]
  - Citrobacter infection [Recovered/Resolved]
  - Skin ulcer [Unknown]
  - Staphylococcal infection [Unknown]
